FAERS Safety Report 16141089 (Version 2)
Quarter: 2019Q2

REPORT INFORMATION
  Report Type: Spontaneous
  Country: US (occurrence: US)
  Receive Date: 20190401
  Receipt Date: 20190523
  Transmission Date: 20190711
  Serious: No
  Sender: FDA-Public Use
  Company Number: US-PFIZER INC-2019128245

PATIENT
  Sex: Male

DRUGS (1)
  1. CHANTIX [Suspect]
     Active Substance: VARENICLINE TARTRATE
     Dosage: UNK (CUTTING PILLS IN HALF TO WEAN HIMSELF OFF)

REACTIONS (2)
  - Pruritus generalised [Unknown]
  - Intentional product use issue [Unknown]
